FAERS Safety Report 7099770-6 (Version None)
Quarter: 2010Q4

REPORT INFORMATION
  Report Type: 
  Country: None (occurrence: None)
  Receive Date: 20101112
  Receipt Date: 20101105
  Transmission Date: 20110411
  Serious: Yes (Hospitalization)
  Sender: FDA-Public Use
  Company Number: FR-RB-013214-10

PATIENT
  Sex: Female
  Weight: 63 kg

DRUGS (17)
  1. SUBOXONE [Suspect]
     Indication: DEPENDENCE
     Route: 060
     Dates: start: 20100607, end: 20100710
  2. BUPRENORPHINE [Suspect]
     Indication: DRUG DEPENDENCE
     Route: 060
     Dates: start: 20100708, end: 20100708
  3. GAVISCON [Concomitant]
     Indication: PROPHYLAXIS
     Route: 048
     Dates: start: 20100723
  4. HYDROXYZINE [Concomitant]
     Indication: ANXIETY
     Route: 048
     Dates: start: 20100715, end: 20100715
  5. HYDROXYZINE [Concomitant]
     Route: 048
     Dates: start: 20100707, end: 20100727
  6. HYDROXYZINE [Concomitant]
     Route: 048
     Dates: start: 20100728
  7. NEXIUM [Concomitant]
     Indication: PROPHYLAXIS
     Route: 048
     Dates: start: 20100723
  8. NEXIUM [Concomitant]
     Route: 048
     Dates: start: 20100723
  9. SUCRALFATE [Concomitant]
     Indication: PROPHYLAXIS
     Route: 048
     Dates: start: 20100709, end: 20100711
  10. METHADONE HCL [Concomitant]
     Indication: DRUG DEPENDENCE
     Dosage: VARYING DOSES
     Route: 048
     Dates: start: 20100711
  11. MYOLASTAN [Concomitant]
     Indication: ANXIETY
     Dosage: DOSES VARY
     Route: 048
     Dates: start: 20100713, end: 20100716
  12. PARACETAMOL [Concomitant]
     Indication: PAIN
     Dosage: DOSES AND ROUTES VARY
     Dates: start: 20100709, end: 20100728
  13. TRAMADOL HYDROCHLORIDE AND ACETAMINOPHEN [Concomitant]
     Indication: PAIN
     Route: 048
     Dates: start: 20100708, end: 20100709
  14. NICOPATCH [Concomitant]
     Indication: TOBACCO USER
     Route: 061
     Dates: start: 20100716, end: 20100728
  15. STILNOX [Concomitant]
     Indication: INSOMNIA
     Route: 048
     Dates: start: 20100707
  16. THERALENE [Concomitant]
     Indication: INSOMNIA
     Dosage: DOSES VARY
     Route: 048
     Dates: start: 20100707
  17. LOVENOX [Concomitant]
     Indication: PHLEBITIS
     Route: 058
     Dates: start: 20100710, end: 20100802

REACTIONS (2)
  - PNEUMONIA [None]
  - STAPHYLOCOCCAL SEPSIS [None]
